FAERS Safety Report 6577008-3 (Version None)
Quarter: 2010Q1

REPORT INFORMATION
  Report Type: 
  Country: None (occurrence: None)
  Receive Date: 20100210
  Receipt Date: 20100202
  Transmission Date: 20100710
  Serious: Yes (Other)
  Sender: FDA-Public Use
  Company Number: GXKR2010CL01437

PATIENT
  Age: 60 Year
  Sex: Male

DRUGS (4)
  1. METRONIDAZOLE (NGX) [Suspect]
     Indication: ENCEPHALOPATHY
     Dosage: DOSE INCREASED FROM 750 MG/DAY TO 1.5 G/DAY
     Route: 065
  2. SPIRONOLACTONE [Concomitant]
  3. LACTULOSE [Concomitant]
  4. VITAMIN K TAB [Concomitant]

REACTIONS (6)
  - ATAXIA [None]
  - CHOREA [None]
  - CONDITION AGGRAVATED [None]
  - DYSARTHRIA [None]
  - MOVEMENT DISORDER [None]
  - MYOCLONUS [None]
